FAERS Safety Report 6003234-8 (Version None)
Quarter: 2008Q4

REPORT INFORMATION
  Report Type: 
  Country: None (occurrence: None)
  Receive Date: 20081215
  Receipt Date: 20081215
  Transmission Date: 20090506
  Serious: Yes (Hospitalization)
  Sender: FDA-Public Use
  Company Number: None

PATIENT
  Sex: Female
  Weight: 83.1 kg

DRUGS (2)
  1. DACARBAZINE [Suspect]
     Indication: MALIGNANT MELANOMA
     Dosage: 1910MG, IV Q21DAYS
     Dates: start: 20080821, end: 20081008
  2. DASATINIB - 140MG - BRISTOL-MYERS SQUIBB [Suspect]
     Indication: MALIGNANT MELANOMA
     Dosage: 140MG ORALLY QD
     Dates: start: 20080822, end: 20081026

REACTIONS (2)
  - DISEASE PROGRESSION [None]
  - GENERAL PHYSICAL HEALTH DETERIORATION [None]
